FAERS Safety Report 9312498 (Version 5)
Quarter: 2013Q3

REPORT INFORMATION
  Report Type: Spontaneous
  Country: US (occurrence: US)
  Receive Date: 20130528
  Receipt Date: 20130724
  Transmission Date: 20140515
  Serious: No
  Sender: FDA-Public Use
  Company Number: US-PFIZER INC-2013159037

PATIENT
  Age: 80 Year
  Sex: Male
  Weight: 117.1 kg

DRUGS (10)
  1. DETROL LA [Suspect]
     Indication: URINARY INCONTINENCE
     Dosage: 4 MG, 1X/DAY
     Route: 048
     Dates: start: 20130515, end: 20130522
  2. SYNTHROID [Concomitant]
     Dosage: UNK
  3. FLECAINIDE [Concomitant]
     Dosage: UNK
  4. ATENOLOL [Concomitant]
     Indication: HYPERTENSION
     Dosage: UNK
  5. ALLOPURINOL [Concomitant]
     Indication: GOUT
     Dosage: UNK
  6. AVODART [Concomitant]
     Dosage: UNK
  7. MOBIC [Concomitant]
     Indication: ARTHRITIS
     Dosage: UNK
  8. OMEPRAZOLE [Concomitant]
     Indication: DYSPEPSIA
     Dosage: UNK, 2X/DAY
  9. COUMADIN [Concomitant]
     Dosage: 5 MG, 1X/DAY
  10. GABAPENTIN [Concomitant]
     Dosage: UNK

REACTIONS (3)
  - Vision blurred [Unknown]
  - Constipation [Unknown]
  - Drug ineffective [Unknown]
